FAERS Safety Report 16828747 (Version 1)
Quarter: 2019Q3

REPORT INFORMATION
  Report Type: Spontaneous
  Country: US (occurrence: US)
  Receive Date: 20190919
  Receipt Date: 20190919
  Transmission Date: 20191005
  Serious: Yes (Other)
  Sender: FDA-Public Use
  Company Number: US-009507513-1909USA003885

PATIENT

DRUGS (5)
  1. REMERON [Suspect]
     Active Substance: MIRTAZAPINE
     Route: 048
  2. PRISTIQ EXTENDED-RELEASE [Suspect]
     Active Substance: DESVENLAFAXINE SUCCINATE
     Dosage: 1 TABLET, EXTENDED RELEASE QD FOR 30 DAYS, QTY: 30
  3. PRISTIQ EXTENDED-RELEASE [Suspect]
     Active Substance: DESVENLAFAXINE SUCCINATE
     Dosage: 1 TABLET, EXTENDED RELEASE QD FOR 30 DAYS, QTY: 30
  4. ADDERALL [Suspect]
     Active Substance: AMPHETAMINE ASPARTATE\AMPHETAMINE SULFATE\DEXTROAMPHETAMINE SACCHARATE\DEXTROAMPHETAMINE SULFATE
  5. KLONOPIN [Suspect]
     Active Substance: CLONAZEPAM

REACTIONS (14)
  - Dysphoria [Unknown]
  - Occipital neuralgia [Unknown]
  - Attention deficit/hyperactivity disorder [Unknown]
  - Hallucination [Unknown]
  - Delusion [Unknown]
  - Cognitive disorder [Unknown]
  - Asocial behaviour [Unknown]
  - Psychiatric symptom [Unknown]
  - Disability [Unknown]
  - Major depression [Unknown]
  - Suicidal ideation [Recovered/Resolved]
  - Insomnia [Unknown]
  - Depressed mood [Unknown]
  - Anxiety [Unknown]

NARRATIVE: CASE EVENT DATE: 2019
